FAERS Safety Report 6866508-4 (Version None)
Quarter: 2010Q3

REPORT INFORMATION
  Report Type: 
  Country: None (occurrence: None)
  Receive Date: 20100722
  Receipt Date: 20100715
  Transmission Date: 20110219
  Serious: Yes (Hospitalization, Other)
  Sender: FDA-Public Use
  Company Number: BE-ABBOTT-10P-013-0657017-00

PATIENT
  Age: 47 Year
  Sex: Female
  Weight: 80 kg

DRUGS (6)
  1. RITONAVIR [Suspect]
     Indication: HIV INFECTION
  2. QUETIAPINE [Interacting]
     Indication: PRODUCT USED FOR UNKNOWN INDICATION
     Dosage: OVERDOSE OF 8000 MG
  3. QUETIAPINE [Interacting]
  4. ATAZANAVIR [Interacting]
     Indication: HIV INFECTION
  5. LAMIVUDINE [Concomitant]
     Indication: HIV INFECTION
  6. TENOFOVIR [Concomitant]
     Indication: HIV INFECTION

REACTIONS (3)
  - COMA [None]
  - DRUG INTERACTION [None]
  - HYPOTENSION [None]
